FAERS Safety Report 13728864 (Version 1)
Quarter: 2017Q3

REPORT INFORMATION
  Report Type: Spontaneous
  Country: US (occurrence: US)
  Receive Date: 20170707
  Receipt Date: 20170707
  Transmission Date: 20171127
  Serious: Yes (Hospitalization)
  Sender: FDA-Public Use
  Company Number: US-ROCHE-1911317

PATIENT
  Age: 9 Year
  Sex: Male

DRUGS (3)
  1. CEFTRIAXONE. [Suspect]
     Active Substance: CEFTRIAXONE
     Indication: PRODUCT USED FOR UNKNOWN INDICATION
     Dosage: OF 100 MG/KG PER DAY IN TWO DIVIDED DOSES (3 G/D TOTAL)
     Route: 065
  2. MANNITOL. [Concomitant]
     Active Substance: MANNITOL
  3. LASIX [Concomitant]
     Active Substance: FUROSEMIDE

REACTIONS (1)
  - Bile duct stone [Recovered/Resolved]
